FAERS Safety Report 6132628-5 (Version None)
Quarter: 2009Q1

REPORT INFORMATION
  Report Type: 
  Country: None (occurrence: None)
  Receive Date: 20090324
  Receipt Date: 20090310
  Transmission Date: 20090719
  Serious: Yes (Hospitalization)
  Sender: FDA-Public Use
  Company Number: KV200900296

PATIENT
  Age: 70 Year
  Sex: Male

DRUGS (20)
  1. ISOSORBIDE MONONITRATE [Suspect]
     Indication: CARDIAC DISORDER
     Dosage: ORAL
     Route: 048
  2. COREG [Concomitant]
  3. HUMALOG /00030501/ (INSULIN) [Concomitant]
  4. ASPIRIN [Concomitant]
  5. NIACIN [Concomitant]
  6. COQ10 (UBIDECARENONE) [Concomitant]
  7. COZAAR (LORSARTAN POTASSIUM) [Concomitant]
  8. PLAVIX [Concomitant]
  9. FUROSEMIDE [Concomitant]
  10. POTASSIUM CHLORIDE [Concomitant]
  11. LEVOTHYROXINE SODIUM [Concomitant]
  12. METHYLPHENIDATE HCL [Concomitant]
  13. DOCUSATE SODIUM (DOCUSATE SODIUM) [Concomitant]
  14. MULTIVITAMIN /00831701/ (VITAMINS NOS) [Concomitant]
  15. OMEPRAZOLE [Concomitant]
  16. CALCIUM WITH VITAMIN D /00944201/ (CALCIUM CARBONATE, COLECALCIFEROL) [Concomitant]
  17. SIMVASTATIN [Concomitant]
  18. REQUIP [Concomitant]
  19. CYMBALTA [Concomitant]
  20. ACETAMINOPHEN W/ CODEINE [Concomitant]

REACTIONS (1)
  - MYOCARDIAL INFARCTION [None]
